FAERS Safety Report 8462903-0 (Version None)
Quarter: 2012Q2

REPORT INFORMATION
  Report Type: 
  Country: None (occurrence: None)
  Receive Date: 20120625
  Receipt Date: 20120611
  Transmission Date: 20120825
  Serious: Yes (Other)
  Sender: FDA-Public Use
  Company Number: KR-ROCHE-1078746

PATIENT

DRUGS (2)
  1. AVASTIN [Suspect]
     Indication: METASTASES TO LIVER
  2. AVASTIN [Suspect]
     Indication: COLORECTAL CANCER

REACTIONS (1)
  - VENOOCCLUSIVE LIVER DISEASE [None]
